FAERS Safety Report 4735249-1 (Version None)
Quarter: 2005Q3

REPORT INFORMATION
  Report Type: 
  Country: None (occurrence: None)
  Receive Date: 20050802
  Receipt Date: 20050722
  Transmission Date: 20060218
  Serious: Yes (Death)
  Sender: FDA-Public Use
  Company Number: 2004-118251-NL

PATIENT
  Sex: Female

DRUGS (2)
  1. REMERON [Suspect]
  2. REMERON [Suspect]
     Dosage: 30 MG DAILY OTHER, VIA FEEDING TUBE

REACTIONS (4)
  - CEREBROVASCULAR ACCIDENT [None]
  - DRUG TOXICITY [None]
  - DYSPHAGIA [None]
  - FEEDING TUBE COMPLICATION [None]
